FAERS Safety Report 14665049 (Version 1)
Quarter: 2018Q1

REPORT INFORMATION
  Report Type: Spontaneous
  Country: US (occurrence: US)
  Receive Date: 20180319
  Receipt Date: 20180319
  Transmission Date: 20180509
  Serious: No
  Sender: FDA-Public Use
  Company Number: None

PATIENT
  Sex: Male

DRUGS (1)
  1. LACTULOSE 10GM/15ML SOLUTION [Suspect]
     Active Substance: LACTULOSE

REACTIONS (1)
  - Drug ineffective [None]
